FAERS Safety Report 9212900 (Version 1)
Quarter: 2013Q2

REPORT INFORMATION
  Report Type: Report from Study
  Country: CA (occurrence: CA)
  Receive Date: 20130405
  Receipt Date: 20130405
  Transmission Date: 20140414
  Serious: Yes (Death, Hospitalization)
  Sender: FDA-Public Use
  Company Number: CA-009507513-1205USA00607

PATIENT
  Age: 68 Year
  Sex: Male
  Weight: 79 kg

DRUGS (8)
  1. EZETIMIBE (+) SIMVASTATIN [Suspect]
     Indication: ACUTE CORONARY SYNDROME
     Dosage: 10-40 MG, QD
     Route: 048
     Dates: start: 20060517
  2. PLACEBO [Suspect]
     Indication: ACUTE CORONARY SYNDROME
     Dosage: 2 DF, QD
     Route: 048
     Dates: start: 20060517
  3. METOPROLOL [Concomitant]
     Dosage: 50 MG, QD
     Route: 048
     Dates: start: 20060919, end: 20120518
  4. IMIPRAMINE HYDROCHLORIDE [Concomitant]
     Dosage: 20 MG, QD
     Route: 048
     Dates: start: 20050601, end: 20120517
  5. ASPIRIN [Concomitant]
     Dosage: 81 MG, QD
     Route: 048
     Dates: start: 20060508, end: 20120425
  6. HYDROCHLOROTHIAZIDE [Concomitant]
     Dosage: 25 MG, QD
     Route: 048
     Dates: start: 20080404, end: 20120425
  7. WARFARIN [Concomitant]
     Dosage: 0.5-4 MG DAILY
     Route: 048
     Dates: start: 20060919, end: 20120425
  8. RAMIPRIL [Concomitant]
     Dosage: 5 MG, QD
     Route: 048
     Dates: start: 20060919, end: 20120425

REACTIONS (2)
  - Bile duct cancer [Fatal]
  - Pneumonia [Recovered/Resolved]
